FAERS Safety Report 8242081 (Version 3)
Quarter: 2012Q4

REPORT INFORMATION
  Report Type: 
  Country: US (occurrence: US)
  Receive Date: 20111112
  Receipt Date: 20121227
  Transmission Date: 20130627
  Serious: Yes (Other)
  Sender: FDA-Public Use
  Company Number: US-ASTRAZENECA-2011SE66594

PATIENT
  Age: 79 Year
  Sex: Male

DRUGS (1)
  1. SYMBICORT PMDI [Suspect]
     Dosage: UNKNOWN STRENGTH AND FREQUENCY
     Route: 055

REACTIONS (3)
  - Neoplasm malignant [Unknown]
  - Blood potassium decreased [Unknown]
  - Dysphonia [Unknown]
